FAERS Safety Report 7427251-6 (Version None)
Quarter: 2011Q2

REPORT INFORMATION
  Report Type: 
  Country: None (occurrence: None)
  Receive Date: 20110420
  Receipt Date: 20110411
  Transmission Date: 20111010
  Serious: No
  Sender: FDA-Public Use
  Company Number: US-PFIZER INC-2011079819

PATIENT
  Sex: Male
  Weight: 111 kg

DRUGS (5)
  1. EFFEXOR XR [Suspect]
     Indication: DEPRESSION
     Dosage: 75 MG, 3X/DAY
     Route: 048
  2. HYDROCODONE [Concomitant]
     Indication: PAIN
     Dosage: 7.5/750 MG, AS NEEDED
  3. XANAX [Concomitant]
     Dosage: UNK
  4. XANAX [Concomitant]
     Indication: ANXIETY
     Dosage: 2 MG, AS NEEDED
     Route: 048
  5. VICODIN [Concomitant]
     Dosage: UNK

REACTIONS (1)
  - DRUG SCREEN FALSE POSITIVE [None]
